FAERS Safety Report 14466189 (Version 1)
Quarter: 2018Q1

REPORT INFORMATION
  Report Type: Spontaneous
  Country: CA (occurrence: CA)
  Receive Date: 20180131
  Receipt Date: 20180131
  Transmission Date: 20180509
  Serious: Yes (Other)
  Sender: FDA-Public Use
  Company Number: CA-009507513-1801CAN014550

PATIENT
  Age: 48 Year
  Sex: Male
  Weight: 77.1 kg

DRUGS (1)
  1. EZETROL [Suspect]
     Active Substance: EZETIMIBE
     Indication: DYSLIPIDAEMIA
     Dosage: 10 MG, 1 EVERY 1 DAY
     Route: 048

REACTIONS (2)
  - Insomnia [Unknown]
  - Middle insomnia [Unknown]
